FAERS Safety Report 24667715 (Version 2)
Quarter: 2024Q4

REPORT INFORMATION
  Report Type: Report from Study
  Country: EG (occurrence: EG)
  Receive Date: 20241127
  Receipt Date: 20241203
  Transmission Date: 20250114
  Serious: No
  Sender: SANDOZ
  Company Number: EG-SANDOZ-SDZ2024EG078391

PATIENT
  Age: 11 Year
  Sex: Male

DRUGS (2)
  1. OMNITROPE [Suspect]
     Active Substance: SOMATROPIN
     Indication: Product used for unknown indication
     Dosage: 10 MG (STRENGTH 10 MG)
     Route: 058
     Dates: start: 2022
  2. OMNITROPE [Suspect]
     Active Substance: SOMATROPIN
     Dosage: (STRENGTH 5 MG)
     Route: 058
     Dates: start: 202309, end: 20241122

REACTIONS (5)
  - Expired device used [Unknown]
  - Product dose omission issue [Unknown]
  - Device mechanical issue [Unknown]
  - Device issue [Unknown]
  - Product availability issue [Unknown]

NARRATIVE: CASE EVENT DATE: 20241122
